FAERS Safety Report 15806569 (Version 1)
Quarter: 2019Q1

REPORT INFORMATION
  Report Type: Spontaneous
  Country: US (occurrence: US)
  Receive Date: 20190110
  Receipt Date: 20190110
  Transmission Date: 20190417
  Serious: No
  Sender: FDA-Public Use
  Company Number: US-BAYER-2019-006905

PATIENT
  Age: 76 Year
  Sex: Male

DRUGS (5)
  1. LEVETIRACETAM. [Concomitant]
     Active Substance: LEVETIRACETAM
  2. LISINOPRIL. [Concomitant]
     Active Substance: LISINOPRIL
  3. LIPITOR [Concomitant]
     Active Substance: ATORVASTATIN CALCIUM
  4. PROVIGIL [CHORIONIC GONADOTROPHIN] [Concomitant]
     Active Substance: GONADOTROPHIN, CHORIONIC
  5. BETASERON [Suspect]
     Active Substance: INTERFERON BETA-1B
     Indication: MULTIPLE SCLEROSIS
     Dosage: 0.25 MG, QOD
     Dates: start: 20130913

REACTIONS (2)
  - Product dose omission [Not Recovered/Not Resolved]
  - Nasopharyngitis [None]

NARRATIVE: CASE EVENT DATE: 20181225
